FAERS Safety Report 11682230 (Version 1)
Quarter: 2015Q4

REPORT INFORMATION
  Report Type: Spontaneous
  Country: ES (occurrence: ES)
  Receive Date: 20151029
  Receipt Date: 20151029
  Transmission Date: 20160304
  Serious: Yes (Hospitalization)
  Sender: FDA-Public Use
  Company Number: ES-BIOGENIDEC-2015BI143272

PATIENT
  Age: 44 Year
  Sex: Female

DRUGS (6)
  1. FAMPYRA [Suspect]
     Active Substance: DALFAMPRIDINE
     Indication: MULTIPLE SCLEROSIS
     Route: 048
     Dates: start: 20150916, end: 20150920
  2. ORFIDAL [Concomitant]
     Active Substance: LORAZEPAM
     Route: 048
     Dates: start: 20150922
  3. NEURONTIN [Concomitant]
     Active Substance: GABAPENTIN
     Route: 048
     Dates: start: 199201, end: 20150922
  4. BOLTIN 2.5 [Concomitant]
     Route: 048
     Dates: start: 20150920
  5. AMANTADINE [Concomitant]
     Active Substance: AMANTADINE
     Route: 048
     Dates: start: 20150922
  6. GILENYA [Concomitant]
     Active Substance: FINGOLIMOD HYDROCHLORIDE
     Route: 048
     Dates: start: 20121220, end: 20150922

REACTIONS (3)
  - Seizure [Unknown]
  - Agitation [Not Recovered/Not Resolved]
  - Insomnia [Unknown]

NARRATIVE: CASE EVENT DATE: 20150920
